FAERS Safety Report 25576413 (Version 1)
Quarter: 2025Q3

REPORT INFORMATION
  Report Type: Spontaneous
  Country: EU (occurrence: EU)
  Receive Date: 20250718
  Receipt Date: 20250718
  Transmission Date: 20251021
  Serious: Yes (Life-Threatening)
  Sender: TEVA
  Company Number: None

PATIENT
  Age: 76 Year
  Sex: Male
  Weight: 77 kg

DRUGS (3)
  1. EZETIMIBE [Suspect]
     Active Substance: EZETIMIBE
     Indication: Hypercholesterolaemia
     Route: 048
     Dates: start: 202410, end: 2025
  2. ROXITHROMYCIN [Suspect]
     Active Substance: ROXITHROMYCIN
     Indication: Dermo-hypodermitis
     Route: 048
     Dates: start: 20250202, end: 20250208
  3. COLCHICINE [Suspect]
     Active Substance: COLCHICINE
     Indication: Gout
     Route: 048
     Dates: start: 20241126, end: 2025

REACTIONS (1)
  - Thrombocytopenia [Recovering/Resolving]

NARRATIVE: CASE EVENT DATE: 20250201
